FAERS Safety Report 8075735-2 (Version None)
Quarter: 2012Q1

REPORT INFORMATION
  Report Type: 
  Country: None (occurrence: None)
  Receive Date: 20120117
  Receipt Date: 20120109
  Transmission Date: 20120608
  Serious: Yes (Hospitalization)
  Sender: FDA-Public Use
  Company Number: 2012AP000056

PATIENT
  Age: 69 Year
  Sex: Male

DRUGS (14)
  1. PREDNISOLONE [Suspect]
     Indication: PRODUCT USED FOR UNKNOWN INDICATION
     Dosage: 5 MG;;PO;
     Route: 048
  2. ADALAT [Concomitant]
  3. METFORMIN HCL [Concomitant]
  4. PREDNISOLONE [Concomitant]
  5. ATORVASTATIN [Concomitant]
  6. AMINOPHYLLINE [Concomitant]
  7. CALCICHEW D3 (LEKOVIT CA) [Concomitant]
  8. LANSOPRAZOLE [Concomitant]
  9. FUROSEMIDE [Concomitant]
  10. GLICLAZIDE [Concomitant]
  11. PRIMIDONE [Concomitant]
  12. FLUTICASONE PROPIONATE [Concomitant]
  13. ALENDRONATE SODIUM [Suspect]
     Indication: PRODUCT USED FOR UNKNOWN INDICATION
     Dosage: 70MG;PO;;
     Route: 048
     Dates: start: 20110101
  14. TOLTERODINE TARTRATE [Concomitant]

REACTIONS (5)
  - WEIGHT DECREASED [None]
  - GASTRIC ULCER [None]
  - GASTRITIS [None]
  - OESOPHAGEAL ULCER [None]
  - GASTROOESOPHAGEAL REFLUX DISEASE [None]
